FAERS Safety Report 8581564 (Version 3)
Quarter: 2012Q4

REPORT INFORMATION
  Report Type: 
  Country: US (occurrence: US)
  Receive Date: 20120525
  Receipt Date: 20121112
  Transmission Date: 20130627
  Serious: No
  Sender: FDA-Public Use
  Company Number: US-ASTRAZENECA-2012SE31670

PATIENT
  Age: 63 Year
  Sex: Female

DRUGS (3)
  1. NEXIUM [Suspect]
     Route: 048
  2. PRILOSEC [Suspect]
     Route: 048
  3. UNSPECIFIED MEDICATIONS [Suspect]
     Route: 065

REACTIONS (5)
  - Nausea [Unknown]
  - Malaise [Unknown]
  - Fatigue [Unknown]
  - Abdominal pain upper [Unknown]
  - Drug dose omission [Unknown]
